FAERS Safety Report 10680688 (Version 1)
Quarter: 2014Q4

REPORT INFORMATION
  Report Type: Spontaneous
  Country: US (occurrence: US)
  Receive Date: 20141229
  Receipt Date: 20141229
  Transmission Date: 20150529
  Serious: Yes (Other)
  Sender: FDA-Public Use
  Company Number: US-SA-2014SA140738

PATIENT
  Age: 76 Year
  Sex: Male
  Weight: 91 kg

DRUGS (10)
  1. TEMAZEPAM. [Concomitant]
     Active Substance: TEMAZEPAM
  2. FIBERCON [Concomitant]
     Active Substance: CALCIUM POLYCARBOPHIL
  3. HYDROCHLOROTHIAZIDE. [Concomitant]
     Active Substance: HYDROCHLOROTHIAZIDE
  4. CRESTOR [Concomitant]
     Active Substance: ROSUVASTATIN CALCIUM
  5. METOPROLOL SUCCINATE. [Concomitant]
     Active Substance: METOPROLOL SUCCINATE
  6. PLAVIX [Suspect]
     Active Substance: CLOPIDOGREL BISULFATE
     Route: 065
  7. VALIUM [Concomitant]
     Active Substance: DIAZEPAM
  8. ENZALUTAMIDE [Suspect]
     Active Substance: ENZALUTAMIDE
     Indication: PROSTATE CANCER METASTATIC
     Route: 048
     Dates: start: 20130519
  9. ASPIRIN. [Suspect]
     Active Substance: ASPIRIN
     Route: 065
  10. METFORMIN [Concomitant]
     Active Substance: METFORMIN HYDROCHLORIDE

REACTIONS (13)
  - Salivary hypersecretion [Not Recovered/Not Resolved]
  - Hot flush [Recovered/Resolved]
  - Malaise [Recovered/Resolved]
  - Haemorrhage [Recovered/Resolved]
  - Rhinitis [Not Recovered/Not Resolved]
  - Animal scratch [Unknown]
  - Weight decreased [Recovered/Resolved]
  - Fatigue [Unknown]
  - Dry mouth [Recovered/Resolved]
  - Rhinorrhoea [Not Recovered/Not Resolved]
  - Nausea [Unknown]
  - Excoriation [Unknown]
  - Fall [Unknown]

NARRATIVE: CASE EVENT DATE: 201405
